FAERS Safety Report 23630859 (Version 1)
Quarter: 2024Q1

REPORT INFORMATION
  Report Type: Spontaneous
  Country: US (occurrence: US)
  Receive Date: 20240314
  Receipt Date: 20240314
  Transmission Date: 20240410
  Serious: No
  Sender: FDA-Public Use
  Company Number: US-JNJFOC-20240328355

PATIENT
  Age: 60 Year
  Sex: Female

DRUGS (3)
  1. SPRAVATO [Suspect]
     Active Substance: ESKETAMINE
     Indication: Depression
     Dates: start: 20240301
  2. SPRAVATO [Suspect]
     Active Substance: ESKETAMINE
     Dates: start: 20240304
  3. SPRAVATO [Suspect]
     Active Substance: ESKETAMINE
     Dates: start: 20240308

REACTIONS (6)
  - Feeling abnormal [Unknown]
  - Anxiety [Unknown]
  - Dissociation [Unknown]
  - Dehydration [Unknown]
  - Incorrect dose administered [Unknown]
  - Product complaint [Unknown]

NARRATIVE: CASE EVENT DATE: 20240308
